FAERS Safety Report 10168135 (Version 2)
Quarter: 2014Q2

REPORT INFORMATION
  Report Type: Spontaneous
  Country: US (occurrence: US)
  Receive Date: 20140512
  Receipt Date: 20140512
  Transmission Date: 20141212
  Serious: Yes (Hospitalization, Other)
  Sender: FDA-Public Use
  Company Number: US-ELI_LILLY_AND_COMPANY-US201403010259

PATIENT
  Sex: Male

DRUGS (10)
  1. HUMALOG LISPRO [Suspect]
     Indication: TYPE 1 DIABETES MELLITUS
     Dosage: 130 U, QD
     Route: 058
     Dates: start: 201312, end: 201401
  2. HUMALOG LISPRO [Suspect]
     Dosage: 130 U, QD
     Route: 058
     Dates: start: 201402
  3. PANTOPRAZOLE [Concomitant]
     Dosage: 40 MG, BID
  4. ISOSORBIDE [Concomitant]
     Dosage: 30 MG, QD
  5. METOPROLOL SUCCINATE [Concomitant]
     Dosage: 25 MG, UNK
  6. RAMIPRIL [Concomitant]
     Dosage: 2.5 MG, QD
  7. AMLODIPINE [Concomitant]
  8. AMBIEN CR [Concomitant]
     Dosage: 12.5 MG, UNK
  9. NITROGLYCERIN [Concomitant]
     Dosage: 1 DF, QD
     Route: 062
  10. CARAFATE [Concomitant]
     Dosage: 10 ML, PRN
     Route: 048

REACTIONS (3)
  - Blood glucose increased [Recovered/Resolved]
  - Ketonuria [Unknown]
  - Drug ineffective [Recovered/Resolved]
